FAERS Safety Report 10145842 (Version 1)
Quarter: 2014Q2

REPORT INFORMATION
  Report Type: Spontaneous
  Country: US (occurrence: US)
  Receive Date: 20140501
  Receipt Date: 20140501
  Transmission Date: 20141212
  Serious: No
  Sender: FDA-Public Use
  Company Number: US-ABBVIE-13P-163-1154589-00

PATIENT
  Age: 85 Year
  Sex: Male
  Weight: 65.83 kg

DRUGS (5)
  1. CREON [Suspect]
     Indication: PANCREATIC INSUFFICIENCY
     Dosage: THREE WITH EACH MEAL AND TWO WITH SNACKS
     Route: 048
     Dates: start: 2013
  2. LOPERAMIDE [Concomitant]
     Indication: DIARRHOEA
  3. MIDODRINE [Concomitant]
     Indication: HYPOTENSION
  4. GAS X [Concomitant]
     Indication: FLATULENCE
  5. ASPIRIN [Concomitant]
     Indication: CEREBROVASCULAR ACCIDENT

REACTIONS (1)
  - Rash maculo-papular [Not Recovered/Not Resolved]
